FAERS Safety Report 22995046 (Version 3)
Quarter: 2023Q4

REPORT INFORMATION
  Report Type: Report from Study
  Country: US (occurrence: US)
  Receive Date: 20230927
  Receipt Date: 20231101
  Transmission Date: 20240109
  Serious: Yes (Hospitalization, Other)
  Sender: FDA-Public Use
  Company Number: US-TAKEDA-2023TUS093568

PATIENT
  Sex: Female

DRUGS (1)
  1. VEDOLIZUMAB [Suspect]
     Active Substance: VEDOLIZUMAB
     Indication: Product used for unknown indication
     Dosage: 300 MILLIGRAM, Q5WEEKS
     Route: 042

REACTIONS (4)
  - Femur fracture [Recovering/Resolving]
  - Fall [Recovering/Resolving]
  - Weight bearing difficulty [Unknown]
  - Off label use [Unknown]
